FAERS Safety Report 20142849 (Version 1)
Quarter: 2021Q4

REPORT INFORMATION
  Report Type: Spontaneous
  Country: FR (occurrence: FR)
  Receive Date: 20211202
  Receipt Date: 20211202
  Transmission Date: 20220303
  Serious: Yes (Hospitalization, Other)
  Sender: FDA-Public Use
  Company Number: FR-ABBVIE-21K-056-4182121-00

PATIENT
  Age: 66 Year
  Sex: Male

DRUGS (1)
  1. DEPAKOTE [Suspect]
     Active Substance: DIVALPROEX SODIUM
     Indication: Intentional overdose
     Route: 048
     Dates: start: 20200922, end: 20200922

REACTIONS (6)
  - Hyperlactacidaemia [Recovering/Resolving]
  - Poisoning deliberate [Recovered/Resolved]
  - Intentional overdose [Unknown]
  - Hyperammonaemia [Recovering/Resolving]
  - Coma [Recovered/Resolved]
  - Bradycardia [Recovered/Resolved]

NARRATIVE: CASE EVENT DATE: 20200922
